FAERS Safety Report 5995739-0 (Version None)
Quarter: 2008Q4

REPORT INFORMATION
  Report Type: 
  Country: None (occurrence: None)
  Receive Date: 20081212
  Receipt Date: 20081202
  Transmission Date: 20090506
  Serious: Yes (Life-Threatening, Other)
  Sender: FDA-Public Use
  Company Number: CO-PFIZER INC-2008100713

PATIENT

DRUGS (2)
  1. SUTENT [Suspect]
     Indication: RENAL CANCER
     Dosage: 50 MG, 1X/DAY
     Route: 048
     Dates: start: 20081024, end: 20081107
  2. FLUOXETINE [Concomitant]
     Indication: DEPRESSION
     Dosage: 1 TABLET, 1X/DAY
     Route: 048

REACTIONS (6)
  - ALTERED STATE OF CONSCIOUSNESS [None]
  - EYELID PTOSIS [None]
  - HALLUCINATION, VISUAL [None]
  - HYPERTENSION [None]
  - HYPOTHYROIDISM [None]
  - THALAMUS HAEMORRHAGE [None]
